FAERS Safety Report 7755390-9 (Version None)
Quarter: 2011Q3

REPORT INFORMATION
  Report Type: 
  Country: None (occurrence: None)
  Receive Date: 20110914
  Receipt Date: 20110906
  Transmission Date: 20111222
  Serious: Yes (Death)
  Sender: FDA-Public Use
  Company Number: 2011AT000335

PATIENT
  Age: 65 Year
  Sex: Male

DRUGS (3)
  1. DIURETICS [Concomitant]
  2. NITROGLYCERIN [Concomitant]
  3. ISOSORBIDE DINITRATE [Suspect]
     Indication: PRODUCT USED FOR UNKNOWN INDICATION
     Dosage: 10 MG;QD;IVDRP
     Route: 041
     Dates: start: 20091231, end: 20091231

REACTIONS (6)
  - HAEMOGLOBIN DECREASED [None]
  - RESPIRATORY TRACT INFECTION [None]
  - SINUS TACHYCARDIA [None]
  - BLOOD ALBUMIN DECREASED [None]
  - ELECTROCARDIOGRAM ST-T SEGMENT ABNORMAL [None]
  - RESPIRATORY FAILURE [None]
